FAERS Safety Report 15978327 (Version 2)
Quarter: 2019Q1

REPORT INFORMATION
  Report Type: Report from Study
  Country: None (occurrence: US)
  Receive Date: 20190219
  Receipt Date: 20190313
  Transmission Date: 20190418
  Serious: Yes (Hospitalization)
  Sender: FDA-Public Use
  Company Number: US-ABBVIE-19K-163-2665608-00

PATIENT
  Age: 50 Year
  Sex: Male

DRUGS (2)
  1. HUMIRA [Suspect]
     Active Substance: ADALIMUMAB
     Indication: PSORIASIS
  2. HUMIRA [Suspect]
     Active Substance: ADALIMUMAB
     Indication: PSORIATIC ARTHROPATHY
     Dosage: CITRATE FREE
     Route: 058
     Dates: start: 20190107, end: 20190121

REACTIONS (11)
  - Hypotension [Recovering/Resolving]
  - Oxygen saturation decreased [Unknown]
  - Headache [Unknown]
  - Chest discomfort [Unknown]
  - Dehydration [Unknown]
  - Influenza virus test positive [Recovering/Resolving]
  - Blood glucose decreased [Recovering/Resolving]
  - Hypoglycaemia [Unknown]
  - Pneumonia [Unknown]
  - Lung infection [Unknown]
  - Pneumonia blastomyces [Recovering/Resolving]

NARRATIVE: CASE EVENT DATE: 2019
